FAERS Safety Report 20485956 (Version 3)
Quarter: 2022Q1

REPORT INFORMATION
  Report Type: Spontaneous
  Country: NL (occurrence: None)
  Receive Date: 20220217
  Receipt Date: 20220301
  Transmission Date: 20220424
  Serious: Yes (Death, Hospitalization, Other)
  Sender: FDA-Public Use
  Company Number: NL-ROCHE-3002847

PATIENT
  Age: 46 Year
  Sex: Male
  Weight: 68 kg

DRUGS (1)
  1. COTELLIC [Suspect]
     Active Substance: COBIMETINIB
     Indication: Product used for unknown indication
     Dosage: 2 TIMES PER DAY WITH A REST WEEK EVERY THREE WEEKS
     Route: 065
     Dates: start: 20211223, end: 20220112

REACTIONS (7)
  - Duodenal ulcer haemorrhage [Unknown]
  - Death [Fatal]
  - Langerhans^ cell histiocytosis [Unknown]
  - Tumour necrosis [Unknown]
  - Intestinal haemorrhage [Unknown]
  - Off label use [Unknown]
  - Hepatic cirrhosis [Fatal]

NARRATIVE: CASE EVENT DATE: 20211231
